FAERS Safety Report 7488916-3 (Version None)
Quarter: 2011Q2

REPORT INFORMATION
  Report Type: 
  Country: None (occurrence: None)
  Receive Date: 20110518
  Receipt Date: 20110420
  Transmission Date: 20111010
  Serious: Yes (Other)
  Sender: FDA-Public Use
  Company Number: US-BAYER-201030373NA

PATIENT
  Age: 21 Year
  Sex: Female
  Weight: 84.807 kg

DRUGS (11)
  1. SINGULAIR [Concomitant]
     Dosage: DAILY DOSE 10 MG
  2. PREVACID [Concomitant]
     Indication: REFLUX GASTRITIS
     Dosage: UNK
     Dates: start: 20080201
  3. NEXIUM [Concomitant]
     Dosage: DAILY DOSE 40 MG
  4. VERAMYST [Concomitant]
     Route: 045
  5. ACIPHEX [Concomitant]
     Indication: REFLUX GASTRITIS
     Dosage: UNK
     Dates: start: 20080201
  6. EXCEDRIN (MIGRAINE) [Concomitant]
  7. YASMIN [Suspect]
     Indication: CONTRACEPTION
     Dosage: UNK
     Route: 048
     Dates: start: 20041001, end: 20080520
  8. YASMIN [Suspect]
     Indication: DYSMENORRHOEA
  9. PROZAC [Concomitant]
     Dosage: 10 MG, BID
  10. PROBIOTICS [Concomitant]
  11. CENTRUM [Concomitant]

REACTIONS (17)
  - MENTAL DISORDER [None]
  - VOMITING [None]
  - CHOLELITHIASIS [None]
  - BILIARY DYSKINESIA [None]
  - GALLBLADDER INJURY [None]
  - ABDOMINAL PAIN UPPER [None]
  - DIARRHOEA [None]
  - PAIN [None]
  - ABDOMINAL DISTENSION [None]
  - CHOLESTEROSIS [None]
  - NAUSEA [None]
  - ABSCESS [None]
  - STRESS [None]
  - HAEMATOMA [None]
  - CHOLECYSTITIS CHRONIC [None]
  - GASTROENTERITIS [None]
  - ABDOMINAL DISCOMFORT [None]
